FAERS Safety Report 9166608 (Version 1)
Quarter: 2013Q1

REPORT INFORMATION
  Report Type: Report from Study
  Country: PL (occurrence: PL)
  Receive Date: 20130315
  Receipt Date: 20130315
  Transmission Date: 20140127
  Serious: Yes (Other)
  Sender: FDA-Public Use
  Company Number: PL-BAXTER-2013BAX009779

PATIENT
  Sex: 0

DRUGS (3)
  1. ENDOXAN [Suspect]
     Indication: ACUTE MYELOID LEUKAEMIA
     Route: 042
  2. BUSULFAN [Suspect]
     Indication: ACUTE MYELOID LEUKAEMIA
     Route: 048
  3. RECOMBINANT GRANULOCYTE COLONY STIMULATING FACTOR [Concomitant]
     Indication: PRODUCT USED FOR UNKNOWN INDICATION
     Route: 065

REACTIONS (2)
  - Neutropenic infection [Unknown]
  - Pyrexia [Unknown]
